FAERS Safety Report 9806351 (Version 1)
Quarter: 2014Q1

REPORT INFORMATION
  Report Type: Spontaneous
  Country: GB (occurrence: GB)
  Receive Date: 20140109
  Receipt Date: 20140109
  Transmission Date: 20141002
  Serious: Yes (Hospitalization)
  Sender: FDA-Public Use
  Company Number: GB-TEVA-454395ISR

PATIENT
  Age: 81 Year
  Sex: Female

DRUGS (1)
  1. METFORMIN [Suspect]
     Indication: TYPE 2 DIABETES MELLITUS
     Route: 065

REACTIONS (5)
  - Blood glucose abnormal [Unknown]
  - Confusional state [Unknown]
  - Disorientation [Unknown]
  - Aggression [Unknown]
  - Dizziness [Unknown]
